FAERS Safety Report 10962212 (Version 4)
Quarter: 2015Q3

REPORT INFORMATION
  Report Type: Spontaneous
  Country: US (occurrence: US)
  Receive Date: 20150327
  Receipt Date: 20150709
  Transmission Date: 20151125
  Serious: No
  Sender: FDA-Public Use
  Company Number: US-PFIZER INC-2015108690

PATIENT
  Age: 54 Year
  Sex: Male
  Weight: 91.17 kg

DRUGS (27)
  1. LYRICA [Suspect]
     Active Substance: PREGABALIN
     Indication: RESTLESS LEGS SYNDROME
  2. CITALOPRAM [Concomitant]
     Active Substance: CITALOPRAM HYDROBROMIDE
     Dosage: 40 MG, 1X/DAY
     Route: 048
  3. VITAMIN B12 [Concomitant]
     Active Substance: CYANOCOBALAMIN
     Dosage: 500 ?G, 1X/DAY
     Route: 048
  4. FERROUS SULFATE [Concomitant]
     Active Substance: FERROUS SULFATE\FERROUS SULFATE, DRIED
     Dosage: 325 MG (65MG IRON), 1X/DAY
     Route: 048
  5. METOPROLOL TARTRATE. [Concomitant]
     Active Substance: METOPROLOL TARTRATE
     Dosage: 25 MG TABLET, 1/2 TABLET, 2X/DAY
     Route: 048
  6. LORATADINE. [Concomitant]
     Active Substance: LORATADINE
     Dosage: 10 MG, 1X/DAY
     Route: 048
  7. REQUIP XL [Concomitant]
     Active Substance: ROPINIROLE HYDROCHLORIDE
     Dosage: 4 MG, DAILY (AT BEDTIME)
     Route: 048
  8. ZONISAMIDE. [Concomitant]
     Active Substance: ZONISAMIDE
     Indication: HEADACHE
     Dosage: 200 UNK, UNK
  9. ZONISAMIDE. [Concomitant]
     Active Substance: ZONISAMIDE
     Indication: MIGRAINE PROPHYLAXIS
     Dosage: 300 MG, DAILY
     Route: 048
  10. LYRICA [Suspect]
     Active Substance: PREGABALIN
     Indication: NECK PAIN
  11. SEROQUEL [Concomitant]
     Active Substance: QUETIAPINE FUMARATE
     Dosage: 300 MG, DAILY (IN THE EVENING)
     Route: 048
  12. CRESTOR [Concomitant]
     Active Substance: ROSUVASTATIN CALCIUM
     Dosage: 10 MG, 1X/DAY
     Route: 048
  13. TAMSULOSIN [Concomitant]
     Active Substance: TAMSULOSIN
     Dosage: 0.4 MG, 1X/DAY
     Route: 048
  14. CLONAZEPAM. [Concomitant]
     Active Substance: CLONAZEPAM
     Indication: ANXIETY
     Dosage: 0.5 MG, AS NEEDED (ONCE DAILY)
     Route: 048
  15. PREVIDENT 5000 PLUS [Concomitant]
     Dosage: UNK, 2X/DAY ((TO TEETH TWICE DAILY BRUSH WITH PEA SIZED AMT.)
  16. ZONISAMIDE. [Concomitant]
     Active Substance: ZONISAMIDE
     Indication: SEIZURE
  17. LYRICA [Suspect]
     Active Substance: PREGABALIN
     Indication: INTERVERTEBRAL DISC DISORDER
  18. VENTOLIN HFA [Concomitant]
     Active Substance: ALBUTEROL SULFATE
     Dosage: UNK, AS NEEDED (1 OR 2 PUFFS EVERY 4 TO 6 HOURS AS NEEDED)
     Route: 048
  19. PROTONIX [Concomitant]
     Active Substance: PANTOPRAZOLE SODIUM
     Dosage: 40 MG, 1X/DAY
     Route: 048
  20. MULTIVITAMIN [Concomitant]
     Active Substance: VITAMINS
     Dosage: 1 DF, 1X/DAY
     Route: 048
  21. CLINDAMYCIN [Concomitant]
     Active Substance: CLINDAMYCIN\CLINDAMYCIN PHOSPHATE
     Dosage: 300 MG, 4X/DAY (UNTIL GONE)
     Route: 048
  22. WARFARIN [Concomitant]
     Active Substance: WARFARIN
     Dosage: 5 MG, UNK
     Route: 048
  23. DOXYCYCLINE MONOHYDRATE [Concomitant]
     Active Substance: DOXYCYCLINE
     Dosage: 100 MG, 2X/DAY
     Route: 048
  24. LYRICA [Suspect]
     Active Substance: PREGABALIN
     Indication: NEURALGIA
     Dosage: 300 MG, 3X/DAY
     Route: 048
     Dates: start: 20140609, end: 201504
  25. LYRICA [Suspect]
     Active Substance: PREGABALIN
     Indication: PAIN
  26. ACETAMINOPHEN W/HYDROCODONE [Concomitant]
     Active Substance: ACETAMINOPHEN\HYDROCODONE
     Indication: PAIN
     Dosage: UNK, AS NEEDED (EVERY 6 TO 8 HOURS AS NEEDED)(HYDROCODONE 5MG-ACETAMINOPHEN 325 MG
     Route: 048
  27. NULYTELY [Concomitant]
     Active Substance: POLYETHYLENE GLYCOL 3350\POTASSIUM CHLORIDE\SODIUM BICARBONATE\SODIUM CHLORIDE
     Dosage: UNK (420 G RECON SOLN, DRINK 8 OZ EVERY 15-20 MINUTES UNTIL GONE)
     Route: 048

REACTIONS (14)
  - Pain in extremity [Not Recovered/Not Resolved]
  - Peripheral coldness [Unknown]
  - Hypoaesthesia [Unknown]
  - Pain [Not Recovered/Not Resolved]
  - Erythema [Unknown]
  - Joint range of motion decreased [Unknown]
  - Temperature intolerance [Unknown]
  - Frostbite [Unknown]
  - Musculoskeletal stiffness [Unknown]
  - Sensory loss [Unknown]
  - Restlessness [Unknown]
  - Intentional product use issue [Unknown]
  - Burning sensation [Unknown]
  - Product use issue [Unknown]
